FAERS Safety Report 23392265 (Version 1)
Quarter: 2024Q1

REPORT INFORMATION
  Report Type: Report from Study
  Country: US (occurrence: US)
  Receive Date: 20240111
  Receipt Date: 20240111
  Transmission Date: 20240410
  Serious: Yes (Other)
  Sender: FDA-Public Use
  Company Number: US-OTSUKA-2024_000692

PATIENT
  Age: 52 Year
  Sex: Female

DRUGS (1)
  1. BREXPIPRAZOLE [Suspect]
     Active Substance: BREXPIPRAZOLE
     Indication: Major depression
     Dosage: UNK
     Route: 065

REACTIONS (9)
  - Mental impairment [Unknown]
  - Depressed mood [Unknown]
  - Feelings of worthlessness [Unknown]
  - Feeling guilty [Unknown]
  - Negative thoughts [Unknown]
  - Disturbance in attention [Unknown]
  - Abulia [Unknown]
  - Feeling abnormal [Unknown]
  - Anxiety [Unknown]
